FAERS Safety Report 13332579 (Version 1)
Quarter: 2017Q1

REPORT INFORMATION
  Report Type: Spontaneous
  Country: IE (occurrence: IE)
  Receive Date: 20170314
  Receipt Date: 20170314
  Transmission Date: 20170428
  Serious: Yes (Other)
  Sender: FDA-Public Use
  Company Number: IE-TEVA-748517ACC

PATIENT
  Age: 14 Year
  Sex: Male

DRUGS (1)
  1. BUPLEX [Suspect]
     Active Substance: IBUPROFEN
     Indication: OROPHARYNGEAL PAIN

REACTIONS (5)
  - Mydriasis [Recovered/Resolved]
  - Erythema [Recovered/Resolved]
  - Euphoric mood [Recovered/Resolved]
  - Pallor [Recovered/Resolved]
  - Fatigue [Recovered/Resolved]
